FAERS Safety Report 8935278 (Version 2)
Quarter: 2013Q1

REPORT INFORMATION
  Report Type: Spontaneous
  Country: US (occurrence: US)
  Receive Date: 20121129
  Receipt Date: 20130219
  Transmission Date: 20140127
  Serious: Yes (Other)
  Sender: FDA-Public Use
  Company Number: US-PFIZER INC-2012297772

PATIENT
  Age: 73 Year
  Sex: Female
  Weight: 70 kg

DRUGS (3)
  1. LYRICA [Suspect]
     Indication: NERVE INJURY
     Dosage: 75 MG, UNK
  2. LYRICA [Suspect]
     Indication: PAIN
  3. SUCRALFATE [Concomitant]
     Indication: PROPHYLAXIS AGAINST GASTROINTESTINAL ULCER
     Dosage: UNK

REACTIONS (10)
  - Pancreatic carcinoma recurrent [Unknown]
  - Metastases to liver [Unknown]
  - Gastrooesophageal reflux disease [Unknown]
  - Thyroid disorder [Unknown]
  - Hypertension [Unknown]
  - Gait disturbance [Unknown]
  - Hypokinesia [Unknown]
  - Fear [Unknown]
  - Limb discomfort [Unknown]
  - Pain [Unknown]
